FAERS Safety Report 10461460 (Version 1)
Quarter: 2014Q3

REPORT INFORMATION
  Report Type: Spontaneous
  Country: DE (occurrence: None)
  Receive Date: 20140909
  Receipt Date: 20140909
  Transmission Date: 20150326
  Serious: Yes (Other)
  Sender: FDA-Public Use
  Company Number: GAM-279-14-DE

PATIENT
  Age: 32 Year
  Sex: Male

DRUGS (1)
  1. OCTAGAM IMMUNE GLOBULIN (HUMAN) [Suspect]
     Active Substance: HUMAN IMMUNOGLOBULIN G
     Indication: IMMUNODEFICIENCY COMMON VARIABLE
     Dosage: 1X  1/TOTAL
     Route: 042
     Dates: start: 20140715, end: 20140715

REACTIONS (3)
  - Cardiovascular disorder [None]
  - Pallor [None]
  - Nausea [None]

NARRATIVE: CASE EVENT DATE: 20140715
